FAERS Safety Report 14314940 (Version 1)
Quarter: 2017Q4

REPORT INFORMATION
  Report Type: Spontaneous
  Country: JP (occurrence: JP)
  Receive Date: 20171221
  Receipt Date: 20171221
  Transmission Date: 20180321
  Serious: Yes (Other)
  Sender: FDA-Public Use
  Company Number: JP-MYLANLABS-2017M1078041

PATIENT
  Age: 6 Year
  Sex: Female

DRUGS (3)
  1. TRETINOIN. [Suspect]
     Active Substance: TRETINOIN
     Indication: ACUTE PROMYELOCYTIC LEUKAEMIA
     Route: 065
  2. MICAFUNGIN [Concomitant]
     Active Substance: MICAFUNGIN
     Indication: FUNGAL INFECTION
     Route: 065
  3. VORICONAZOLE. [Interacting]
     Active Substance: VORICONAZOLE
     Indication: FUNGAL INFECTION
     Route: 065

REACTIONS (2)
  - Hypercalcaemia [Recovering/Resolving]
  - Drug interaction [Recovering/Resolving]
